FAERS Safety Report 9466313 (Version 3)
Quarter: 2013Q3

REPORT INFORMATION
  Report Type: Spontaneous
  Country: US (occurrence: US)
  Receive Date: 20130820
  Receipt Date: 20130913
  Transmission Date: 20140515
  Serious: Yes (Other)
  Sender: FDA-Public Use
  Company Number: US-BAYER-2013-099942

PATIENT
  Age: 25 Year
  Sex: Female

DRUGS (1)
  1. MIRENA [Suspect]
     Indication: CONTRACEPTION
     Dosage: 20 MCG/24HR, CONT
     Route: 015
     Dates: start: 20130124, end: 20130815

REACTIONS (8)
  - Uterine haemorrhage [None]
  - Abdominal pain [None]
  - Uterine perforation [None]
  - Device breakage [None]
  - Complication of device removal [None]
  - Device deployment issue [None]
  - Pelvic cyst [None]
  - Coital bleeding [None]
